FAERS Safety Report 18110054 (Version 1)
Quarter: 2020Q3

REPORT INFORMATION
  Report Type: Spontaneous
  Country: US (occurrence: US)
  Receive Date: 20200804
  Receipt Date: 20200804
  Transmission Date: 20201103
  Serious: Yes (Other)
  Sender: FDA-Public Use
  Company Number: US-BTG-202000132

PATIENT
  Age: 15 Year
  Sex: Male
  Weight: 69.5 kg

DRUGS (8)
  1. IV FLUIDS [Concomitant]
     Active Substance: UNSPECIFIED INGREDIENT
     Indication: FLUID OVERLOAD
     Dosage: 125 ML/M2
  2. IV FLUIDS [Concomitant]
     Active Substance: UNSPECIFIED INGREDIENT
     Indication: FLUID OVERLOAD
     Dosage: 200 ML/M2
  3. LEUCOVORIN. [Suspect]
     Active Substance: LEUCOVORIN
     Indication: TOXICITY TO VARIOUS AGENTS
     Dosage: 15 ML/M2 OVER 6 H
     Route: 041
  4. METHOTREXATE. [Suspect]
     Active Substance: METHOTREXATE
     Indication: MYELOID LEUKAEMIA
     Dosage: 24 H
     Route: 065
  5. LEUCOVORIN. [Suspect]
     Active Substance: LEUCOVORIN
     Indication: TOXICITY TO VARIOUS AGENTS
     Dosage: 15 ML/M2 OVER 6 H
     Route: 041
  6. LEUCOVORIN. [Suspect]
     Active Substance: LEUCOVORIN
     Indication: TOXICITY TO VARIOUS AGENTS
     Dosage: 100 ML/M2 OVER 6 H
     Route: 041
  7. VORAXAZE [Suspect]
     Active Substance: GLUCARPIDASE
     Indication: DRUG LEVEL INCREASED
     Route: 040
  8. SODIUM BICARBONATE. [Concomitant]
     Active Substance: SODIUM BICARBONATE
     Indication: URINE ALKALINISATION THERAPY
     Route: 048

REACTIONS (2)
  - Laboratory test interference [Unknown]
  - Acute kidney injury [Unknown]
